FAERS Safety Report 23366382 (Version 2)
Quarter: 2024Q2

REPORT INFORMATION
  Report Type: Report from Study
  Country: US (occurrence: US)
  Receive Date: 20240104
  Receipt Date: 20240404
  Transmission Date: 20240716
  Serious: No
  Sender: FDA-Public Use
  Company Number: US-TG THERAPEUTICS INC.-TGT003108

PATIENT
  Age: 78 Year
  Sex: Female

DRUGS (14)
  1. UBLITUXIMAB [Suspect]
     Active Substance: UBLITUXIMAB
     Indication: Product used for unknown indication
     Dosage: UNK
     Route: 042
     Dates: start: 20231120, end: 20231120
  2. ACYCLOVIR [Concomitant]
     Active Substance: ACYCLOVIR
     Indication: Product used for unknown indication
     Dosage: 800 MILLIGRAM, TID
     Dates: start: 20231006, end: 20231016
  3. ARMODAFINIL [Concomitant]
     Active Substance: ARMODAFINIL
     Indication: Product used for unknown indication
     Dosage: 50 MG, 1/2 TAB EVERY MORNING
  4. B COMPLEX WITH B-12 [Concomitant]
     Indication: Product used for unknown indication
     Dosage: 1 DOSAGE FORM, QD
  5. CLEMASTINE FUMARATE [Concomitant]
     Active Substance: CLEMASTINE FUMARATE
     Indication: Product used for unknown indication
  6. COLLAGEN [Concomitant]
     Active Substance: COLLAGEN
     Indication: Product used for unknown indication
  7. DOMPERIDONE [Concomitant]
     Active Substance: DOMPERIDONE
     Indication: Product used for unknown indication
  8. PRIMADOPHILUS [Concomitant]
     Indication: Product used for unknown indication
  9. VITAMIN D3 [Concomitant]
     Active Substance: CHOLECALCIFEROL
     Indication: Product used for unknown indication
  10. IRON [Concomitant]
     Active Substance: IRON
     Indication: Product used for unknown indication
  11. CALCIUM [Concomitant]
     Active Substance: CALCIUM
     Indication: Product used for unknown indication
  12. ZINC [Concomitant]
     Active Substance: PYRITHIONE ZINC\ZINC\ZINC CHLORIDE
     Indication: Product used for unknown indication
  13. MAGNESIUM [Concomitant]
     Active Substance: MAGNESIUM
     Indication: Product used for unknown indication
  14. VITAMIN B12 [Concomitant]
     Active Substance: CYANOCOBALAMIN
     Indication: Product used for unknown indication

REACTIONS (3)
  - Infusion related reaction [Unknown]
  - Erythema [Recovered/Resolved]
  - Swelling face [Recovered/Resolved]

NARRATIVE: CASE EVENT DATE: 20231121
